FAERS Safety Report 23823348 (Version 1)
Quarter: 2024Q2

REPORT INFORMATION
  Report Type: Spontaneous
  Country: CH (occurrence: US)
  Receive Date: 20240507
  Receipt Date: 20240507
  Transmission Date: 20240715
  Serious: Yes (Hospitalization, Other)
  Sender: FDA-Public Use
  Company Number: CH-AUROBINDO-AUR-APL-2024-020400

PATIENT
  Age: 49 Year
  Sex: Male

DRUGS (26)
  1. CLOZAPINE [Suspect]
     Active Substance: CLOZAPINE
     Indication: Schizophrenia
     Dosage: UNK
     Route: 065
  2. CLOZAPINE [Suspect]
     Active Substance: CLOZAPINE
     Indication: Malignant catatonia
  3. AMANTADINE [Suspect]
     Active Substance: AMANTADINE
     Indication: Schizophrenia
     Dosage: 600 MILLIGRAM
     Route: 065
  4. AMANTADINE [Suspect]
     Active Substance: AMANTADINE
     Indication: Malignant catatonia
  5. QUETIAPINE [Suspect]
     Active Substance: QUETIAPINE
     Indication: Schizophrenia
     Dosage: 25 MILLIGRAM
     Route: 065
  6. QUETIAPINE [Suspect]
     Active Substance: QUETIAPINE
     Indication: Malignant catatonia
  7. CHLORPROMAZINE HYDROCHLORIDE [Suspect]
     Active Substance: CHLORPROMAZINE HYDROCHLORIDE
     Indication: Schizophrenia
     Dosage: UNK
     Route: 065
  8. CHLORPROMAZINE HYDROCHLORIDE [Suspect]
     Active Substance: CHLORPROMAZINE HYDROCHLORIDE
     Indication: Malignant catatonia
  9. PIMAVANSERIN [Suspect]
     Active Substance: PIMAVANSERIN
     Indication: Schizophrenia
     Dosage: UNK
     Route: 065
  10. PIMAVANSERIN [Suspect]
     Active Substance: PIMAVANSERIN
     Indication: Malignant catatonia
  11. LORAZEPAM [Suspect]
     Active Substance: LORAZEPAM
     Indication: Schizophrenia
     Dosage: 1 MILLIGRAM, 3 TIMES A DAY
     Route: 065
  12. LORAZEPAM [Suspect]
     Active Substance: LORAZEPAM
     Indication: Malignant catatonia
     Dosage: 1.5 MILLIGRAM, FOUR TIMES/DAY
     Route: 065
  13. LORAZEPAM [Suspect]
     Active Substance: LORAZEPAM
     Dosage: 2 MILLIGRAM, 3 TIMES A DAY
     Route: 065
  14. LORAZEPAM [Suspect]
     Active Substance: LORAZEPAM
     Dosage: 20 MILLIGRAM, DAILY
     Route: 030
  15. LORAZEPAM [Suspect]
     Active Substance: LORAZEPAM
     Dosage: 10 MILLIGRAM, DAILY
     Route: 030
  16. LORAZEPAM [Suspect]
     Active Substance: LORAZEPAM
     Dosage: 36 MILLIGRAM, DAILY
     Route: 030
  17. OLANZAPINE [Suspect]
     Active Substance: OLANZAPINE
     Indication: Schizophrenia
     Dosage: 10 MILLIGRAM, DAILY, AT BEDTIME
     Route: 065
  18. OLANZAPINE [Suspect]
     Active Substance: OLANZAPINE
     Indication: Malignant catatonia
     Dosage: 20 MILLIGRAM, DAILY,AT NIGHT
     Route: 065
  19. DIAZEPAM [Suspect]
     Active Substance: DIAZEPAM
     Indication: Schizophrenia
     Dosage: 12.5 MILLIGRAM, FOUR TIMES/DAY
     Route: 042
  20. DIAZEPAM [Suspect]
     Active Substance: DIAZEPAM
     Indication: Malignant catatonia
  21. ARIPIPRAZOLE [Suspect]
     Active Substance: ARIPIPRAZOLE
     Indication: Schizophrenia
     Dosage: UNK
     Route: 065
  22. ARIPIPRAZOLE [Suspect]
     Active Substance: ARIPIPRAZOLE
     Indication: Malignant catatonia
  23. VALPROIC ACID [Suspect]
     Active Substance: VALPROIC ACID
     Indication: Schizophrenia
     Dosage: 800 MILLIGRAM, 3 TIMES A DAY
     Route: 065
  24. VALPROIC ACID [Suspect]
     Active Substance: VALPROIC ACID
     Indication: Malignant catatonia
  25. LITHIUM [Suspect]
     Active Substance: LITHIUM
     Indication: Schizophrenia
     Dosage: UNK
     Route: 065
  26. LITHIUM [Suspect]
     Active Substance: LITHIUM
     Indication: Malignant catatonia

REACTIONS (4)
  - Neuroleptic malignant syndrome [Unknown]
  - Drug ineffective [Unknown]
  - Psychotic disorder [Unknown]
  - Pyrexia [Unknown]
